FAERS Safety Report 7311314-X (Version None)
Quarter: 2011Q1

REPORT INFORMATION
  Report Type: 
  Country: None (occurrence: None)
  Receive Date: 20110224
  Receipt Date: 20110222
  Transmission Date: 20110831
  Serious: Yes (Hospitalization, Other)
  Sender: FDA-Public Use
  Company Number: US-ROXANE LABORATORIES, INC.-2011-DE-01190GD

PATIENT
  Age: 30 Year
  Sex: Female

DRUGS (1)
  1. PREDNISONE [Suspect]
     Indication: GRAFT VERSUS HOST DISEASE
     Dosage: HIGH DOSE

REACTIONS (5)
  - ARTHRALGIA [None]
  - MUSCULOSKELETAL PAIN [None]
  - SYNOVITIS [None]
  - OSTEONECROSIS [None]
  - HUMERUS FRACTURE [None]
